FAERS Safety Report 5526890-7 (Version None)
Quarter: 2007Q4

REPORT INFORMATION
  Report Type: 
  Country: None (occurrence: None)
  Receive Date: 20071127
  Receipt Date: 20071116
  Transmission Date: 20080405
  Serious: Yes (Other)
  Sender: FDA-Public Use
  Company Number: CA-PFIZER INC-2007084096

PATIENT
  Sex: Female

DRUGS (2)
  1. DEPO-MEDROL [Suspect]
     Indication: BACK PAIN
     Dates: start: 20020101, end: 20020101
  2. DEPO-MEDROL [Suspect]
     Indication: HEADACHE

REACTIONS (19)
  - ALOPECIA [None]
  - ARACHNOID CYST [None]
  - ARTHRITIS [None]
  - BURNING SENSATION [None]
  - CARDIOVASCULAR DISORDER [None]
  - COLLAPSE OF LUNG [None]
  - CONVULSION [None]
  - ENCEPHALOPATHY [None]
  - HYPERHIDROSIS [None]
  - INCORRECT ROUTE OF DRUG ADMINISTRATION [None]
  - INJECTION SITE ATROPHY [None]
  - INJECTION SITE IRRITATION [None]
  - MUSCLE ATROPHY [None]
  - OEDEMA [None]
  - OSTEOPENIA [None]
  - PAIN [None]
  - TREMOR [None]
  - URINARY INCONTINENCE [None]
  - VISUAL DISTURBANCE [None]
